FAERS Safety Report 4506911-0 (Version None)
Quarter: 2004Q4

REPORT INFORMATION
  Report Type: 
  Country: None (occurrence: None)
  Receive Date: 20041117
  Receipt Date: 20041101
  Transmission Date: 20050328
  Serious: No
  Sender: FDA-Public Use
  Company Number: 9176

PATIENT

DRUGS (3)
  1. LEUCOVORIN [Suspect]
     Indication: RECTAL CANCER
     Dosage: 15 MG BID
     Route: 048
  2. TEGAFUR URACIL [Suspect]
     Indication: RECTAL CANCER
     Dosage: SEE IMAGE
     Route: 048
  3. TEGAFUR URACIL [Suspect]
     Indication: RECTAL CANCER
     Dosage: SEE IMAGE
     Route: 048

REACTIONS (1)
  - DIARRHOEA [None]
